FAERS Safety Report 20648815 (Version 1)
Quarter: 2022Q1

REPORT INFORMATION
  Report Type: Spontaneous
  Country: US (occurrence: US)
  Receive Date: 20220329
  Receipt Date: 20220329
  Transmission Date: 20220424
  Serious: No
  Sender: FDA-Public Use
  Company Number: US-BAYER-2022A044606

PATIENT
  Age: 67 Year
  Sex: Female

DRUGS (2)
  1. DEVICE [Suspect]
     Active Substance: DEVICE
  2. BETASERON [Suspect]
     Active Substance: INTERFERON BETA-1B

REACTIONS (1)
  - Incorrect dose administered by device [None]
